FAERS Safety Report 4974077-9 (Version None)
Quarter: 2006Q2

REPORT INFORMATION
  Report Type: 
  Country: None (occurrence: None)
  Receive Date: 20060417
  Receipt Date: 20060406
  Transmission Date: 20061013
  Serious: Yes (Hospitalization)
  Sender: FDA-Public Use
  Company Number: FR-GLAXOSMITHKLINE-B0419428A

PATIENT
  Age: 59 Year
  Sex: Female

DRUGS (1)
  1. KIVEXA [Suspect]
     Indication: HIV INFECTION
     Route: 048
     Dates: start: 20060228, end: 20060310

REACTIONS (4)
  - EYELID OEDEMA [None]
  - PRURITUS [None]
  - PYREXIA [None]
  - URTICARIA [None]
